FAERS Safety Report 16801921 (Version 1)
Quarter: 2019Q3

REPORT INFORMATION
  Report Type: Report from Study
  Country: BR (occurrence: BR)
  Receive Date: 20190912
  Receipt Date: 20190912
  Transmission Date: 20191005
  Serious: Yes (Other)
  Sender: FDA-Public Use
  Company Number: PHHY2018BR085814

PATIENT
  Age: 33 Year
  Sex: Male
  Weight: 32 kg

DRUGS (3)
  1. MYFORTIC [Suspect]
     Active Substance: MYCOPHENOLATE SODIUM
     Indication: IMMUNOSUPPRESSION
     Dosage: 360 MG, 2 OR 3 TABLETS A DAY STARTED 8 YEARS AGO AND USED TILL 2 MONTHS AGO
     Route: 048
  2. MYCOPHENOLATE SODIUM [Suspect]
     Active Substance: MYCOPHENOLATE SODIUM
     Indication: PRODUCT USED FOR UNKNOWN INDICATION
     Dosage: 180 MG, UNK
     Route: 065
  3. MYFORTIC [Suspect]
     Active Substance: MYCOPHENOLATE SODIUM
     Indication: RENAL TRANSPLANT
     Dosage: 6 DF (180 MG), QD
     Route: 048
     Dates: start: 201705

REACTIONS (7)
  - Weight abnormal [Not Recovered/Not Resolved]
  - Drug intolerance [Not Recovered/Not Resolved]
  - Ill-defined disorder [Recovering/Resolving]
  - Gastrointestinal pain [Recovering/Resolving]
  - Multiple allergies [Recovering/Resolving]
  - Lactose intolerance [Not Recovered/Not Resolved]
  - Frequent bowel movements [Not Recovered/Not Resolved]

NARRATIVE: CASE EVENT DATE: 201706
